FAERS Safety Report 6389733-8 (Version None)
Quarter: 2009Q4

REPORT INFORMATION
  Report Type: 
  Country: None (occurrence: None)
  Receive Date: 20091001
  Receipt Date: 20090916
  Transmission Date: 20100525
  Serious: Yes (Hospitalization)
  Sender: FDA-Public Use
  Company Number: TPA2009A02744

PATIENT
  Age: 63 Year
  Sex: Female
  Weight: 65.7716 kg

DRUGS (11)
  1. PREVACID [Suspect]
     Indication: GASTROOESOPHAGEAL REFLUX DISEASE
     Dosage: 30 MG, 1 IN 1 D, PER ORAL; 30 MG, 2 IN 1 D, PER ORAL
     Route: 048
     Dates: end: 20090101
  2. PREVACID [Suspect]
     Indication: GASTROOESOPHAGEAL REFLUX DISEASE
     Dosage: 30 MG, 1 IN 1 D, PER ORAL; 30 MG, 2 IN 1 D, PER ORAL
     Route: 048
     Dates: start: 20070916
  3. CARDIZEM LA (DILTIAZEM) [Concomitant]
  4. SINGULAIR [Concomitant]
  5. LEXAPRO [Concomitant]
  6. CRESTOR [Concomitant]
  7. SYNTHROID [Concomitant]
  8. ADVAIR INHALER (FLUTICASONE PROPIONATE, SALMETEROL XINAFOATE) [Concomitant]
  9. ESTROVAN MAXIMUM STRENGTH (ALL OTHER THERAPEUTIC PRODUCTS) [Concomitant]
  10. ZANTAC 150 [Concomitant]
  11. TUMS (CALCIUM CARBONATE) [Concomitant]

REACTIONS (7)
  - ANXIETY [None]
  - CONDITION AGGRAVATED [None]
  - DRUG INEFFECTIVE [None]
  - GASTROOESOPHAGEAL REFLUX DISEASE [None]
  - HERNIA [None]
  - PROCEDURAL COMPLICATION [None]
  - TENSION [None]
